FAERS Safety Report 7308996-5 (Version None)
Quarter: 2011Q1

REPORT INFORMATION
  Report Type: 
  Country: None (occurrence: None)
  Receive Date: 20110211
  Receipt Date: 20110204
  Transmission Date: 20110831
  Serious: Yes (Life-Threatening, Hospitalization, Other)
  Sender: FDA-Public Use
  Company Number: 2011SP005512

PATIENT
  Age: 55 Year
  Sex: Male

DRUGS (3)
  1. HEPARIN [Concomitant]
  2. EFFIENT [Concomitant]
  3. INTEGRILIN [Suspect]
     Indication: MYOCARDIAL INFARCTION
     Dosage: 2 MG;ONCE;IV
     Route: 042

REACTIONS (1)
  - HAEMORRHAGE [None]
